FAERS Safety Report 10725965 (Version 3)
Quarter: 2015Q2

REPORT INFORMATION
  Report Type: Report from Study
  Country: US (occurrence: US)
  Receive Date: 20150121
  Receipt Date: 20150603
  Transmission Date: 20150821
  Serious: No
  Sender: FDA-Public Use
  Company Number: US-AMGEN-USASL2015003326

PATIENT
  Age: 26 Year
  Sex: Female
  Weight: 66.67 kg

DRUGS (1)
  1. ENBREL [Suspect]
     Active Substance: ETANERCEPT
     Indication: ANKYLOSING SPONDYLITIS
     Dosage: , QWK
     Route: 058
     Dates: start: 201412

REACTIONS (12)
  - Heart rate increased [Recovered/Resolved]
  - Palpitations [Recovering/Resolving]
  - Condition aggravated [Recovered/Resolved]
  - Pain [Recovered/Resolved]
  - Pain in extremity [Recovered/Resolved]
  - Abdominal pain upper [Unknown]
  - Back pain [Recovered/Resolved]
  - Dyspnoea [Recovered/Resolved]
  - Pharyngitis streptococcal [Recovered/Resolved]
  - Neck pain [Recovered/Resolved]
  - Chest pain [Unknown]
  - Arthralgia [Recovered/Resolved]

NARRATIVE: CASE EVENT DATE: 201412
